FAERS Safety Report 11131301 (Version 3)
Quarter: 2015Q3

REPORT INFORMATION
  Report Type: Spontaneous
  Country: NO (occurrence: NO)
  Receive Date: 20150522
  Receipt Date: 20150831
  Transmission Date: 20151125
  Serious: Yes (Hospitalization, Other)
  Sender: FDA-Public Use
  Company Number: NO-ROCHE-1579137

PATIENT
  Age: 50 Year
  Sex: Male

DRUGS (13)
  1. COTRIMOXAZOLE [Suspect]
     Active Substance: SULFAMETHOXAZOLE\TRIMETHOPRIM
     Indication: GLOMERULONEPHRITIS
  2. VALGANCICLOVIR [Suspect]
     Active Substance: VALGANCICLOVIR
     Indication: GLOMERULONEPHRITIS
  3. CYCLOPHOSPHAMIDE. [Suspect]
     Active Substance: CYCLOPHOSPHAMIDE
     Indication: GOODPASTURE^S SYNDROME
     Dosage: 50 MG, QD
     Route: 048
  4. METHYLPREDNISOLONE. [Suspect]
     Active Substance: METHYLPREDNISOLONE
     Indication: GOODPASTURE^S SYNDROME
     Dosage: HIGH DOSE, ONCE DAILY FOR 3 DAYS
     Route: 042
  5. ERYTHROMYCIN. [Suspect]
     Active Substance: ERYTHROMYCIN
     Indication: RESPIRATORY TRACT INFECTION
     Route: 065
  6. COTRIMOXAZOLE [Suspect]
     Active Substance: SULFAMETHOXAZOLE\TRIMETHOPRIM
     Indication: ANTIFUNGAL PROPHYLAXIS
     Dosage: 1 TABLET DAILY
     Route: 065
  7. VALGANCICLOVIR [Suspect]
     Active Substance: VALGANCICLOVIR
     Indication: CYTOMEGALOVIRUS INFECTION
     Route: 065
  8. CEFOTAXIME [Suspect]
     Active Substance: CEFOTAXIME SODIUM
     Indication: SEPSIS
     Route: 042
  9. AZATHIOPRINE. [Suspect]
     Active Substance: AZATHIOPRINE
     Indication: PRODUCT USED FOR UNKNOWN INDICATION
     Route: 065
  10. PREDNISOLONE. [Suspect]
     Active Substance: PREDNISOLONE
     Indication: GOODPASTURE^S SYNDROME
     Route: 048
  11. CYCLOPHOSPHAMIDE. [Suspect]
     Active Substance: CYCLOPHOSPHAMIDE
     Indication: GLOMERULONEPHRITIS
  12. METRONIDAZOLE. [Suspect]
     Active Substance: METRONIDAZOLE
     Indication: CLOSTRIDIUM COLITIS
     Route: 065
  13. GANCICLOVIR. [Concomitant]
     Active Substance: GANCICLOVIR
     Indication: CYTOMEGALOVIRUS INFECTION
     Route: 065

REACTIONS (8)
  - Diarrhoea [Recovering/Resolving]
  - Thrombosis [Recovered/Resolved]
  - Neutropenia [Recovered/Resolved]
  - Peripheral swelling [Recovering/Resolving]
  - Clostridium colitis [Recovered/Resolved]
  - Bone marrow failure [Recovered/Resolved]
  - Cytomegalovirus infection [Recovered/Resolved]
  - Leukopenia [Recovered/Resolved]
